FAERS Safety Report 14587860 (Version 2)
Quarter: 2018Q1

REPORT INFORMATION
  Report Type: Spontaneous
  Country: FR (occurrence: FR)
  Receive Date: 20180301
  Receipt Date: 20180316
  Transmission Date: 20180509
  Serious: Yes (Hospitalization, Other)
  Sender: FDA-Public Use
  Company Number: PHHY2014FR185021

PATIENT
  Age: 71 Year
  Sex: Female
  Weight: 68 kg

DRUGS (6)
  1. 5-FLUOROURACIL [Suspect]
     Active Substance: FLUOROURACIL
     Indication: COLORECTAL CANCER METASTATIC
     Dosage: 688 MG, CYCLIC
     Route: 040
     Dates: start: 20140626
  2. 5-FLUOROURACIL [Suspect]
     Active Substance: FLUOROURACIL
     Dosage: 4128 MG, CYCLIC
     Route: 042
     Dates: start: 20140628
  3. AVASTIN [Suspect]
     Active Substance: BEVACIZUMAB
     Dosage: REINTRODUCED AT THIRD COURSE OF CHEMOTHERAPY
     Route: 042
  4. OXALIPLATIN. [Suspect]
     Active Substance: OXALIPLATIN
     Indication: COLORECTAL CANCER METASTATIC
     Dosage: 148.75 MG, CYCLIC
     Route: 042
     Dates: start: 20140626
  5. CALCIUM LEVOFOLINATE [Suspect]
     Active Substance: LEVOLEUCOVORIN CALCIUM
     Indication: COLORECTAL CANCER METASTATIC
     Dosage: 350 MG, CYCLIC
     Route: 042
     Dates: start: 20140626
  6. AVASTIN [Suspect]
     Active Substance: BEVACIZUMAB
     Indication: COLORECTAL CANCER METASTATIC
     Dosage: 345 MG, CYCLIC (LAST DOSE PRIOT TO SAE 26/JUN/2014 DATE OF MOST RECENT DOSE PRIOR TO SECOND EPISODE)
     Route: 042
     Dates: start: 20140626

REACTIONS (3)
  - Neutropenia [Recovered/Resolved]
  - Pyrexia [Recovered/Resolved]
  - Cholecystitis acute [Recovered/Resolved]

NARRATIVE: CASE EVENT DATE: 20140702
